FAERS Safety Report 9122335 (Version 1)
Quarter: 2013Q1

REPORT INFORMATION
  Report Type: Report from Study
  Country: US (occurrence: US)
  Receive Date: 20130114
  Receipt Date: 20130114
  Transmission Date: 20140127
  Serious: Yes (Hospitalization)
  Sender: FDA-Public Use
  Company Number: US-009507513-1203USA00724

PATIENT
  Age: 49 Year
  Sex: Female
  Weight: 63.49 kg

DRUGS (40)
  1. MK-5172 [Suspect]
     Indication: CHRONIC HEPATITIS C
     Route: 048
     Dates: start: 20110921, end: 20110925
  2. MK-5172 [Suspect]
     Dosage: UNK
     Route: 048
     Dates: start: 20110927, end: 20111101
  3. MK-5172 [Suspect]
     Dosage: UNK
     Route: 048
     Dates: start: 20111103, end: 20111105
  4. MK-5172 [Suspect]
     Dosage: UNK
     Route: 048
     Dates: start: 20111107, end: 20111121
  5. MK-5172 [Suspect]
     Dosage: UNK
     Route: 048
     Dates: start: 20111125, end: 20111129
  6. MK-5172 [Suspect]
     Dosage: UNK
     Route: 048
     Dates: start: 20111201, end: 20111202
  7. MK-5172 [Suspect]
     Dosage: UNK
     Route: 048
     Dates: start: 20111204, end: 20111211
  8. MK-5172 [Suspect]
     Dosage: UNK
     Route: 048
     Dates: start: 20111213
  9. PLACEBO [Suspect]
     Indication: CHRONIC HEPATITIS C
     Route: 048
     Dates: start: 20111019, end: 20111121
  10. PLACEBO [Suspect]
     Dosage: UNK
     Route: 048
     Dates: start: 20111125, end: 20111129
  11. PLACEBO [Suspect]
     Dosage: UNK
     Route: 048
     Dates: start: 20111201, end: 20111202
  12. PLACEBO [Suspect]
     Dosage: UNK
     Route: 048
     Dates: start: 20111204, end: 20111211
  13. PLACEBO [Suspect]
     Dosage: UNK
     Route: 048
     Dates: start: 20111213, end: 20120227
  14. PLACEBO [Suspect]
     Dosage: UNK
     Route: 048
     Dates: start: 20120304
  15. PEGINTERFERON ALFA-2B [Suspect]
     Indication: CHRONIC HEPATITIS C
     Dosage: 120 MCG/0.5ML
     Route: 058
     Dates: start: 20110921, end: 20111116
  16. PEGINTERFERON ALFA-2B [Suspect]
     Dosage: 120 MCG/0.5ML
     Route: 058
     Dates: start: 20111129, end: 20111214
  17. PEGINTERFERON ALFA-2B [Suspect]
     Dosage: 120 MCG/0.5ML
     Route: 058
     Dates: start: 20111226, end: 20111226
  18. PEGINTERFERON ALFA-2B [Suspect]
     Dosage: 120 MCG/0.5ML
     Route: 058
     Dates: start: 20120107, end: 20120107
  19. PEGINTERFERON ALFA-2B [Suspect]
     Dosage: 120 MCG/0.5ML
     Route: 058
     Dates: start: 20120111, end: 20120227
  20. RIBAVIRIN [Suspect]
     Indication: CHRONIC HEPATITIS C
     Dosage: 400 MG, UNK
     Route: 048
     Dates: start: 20110921, end: 20110925
  21. RIBAVIRIN [Suspect]
     Dosage: 600 MG, UNK
     Route: 048
     Dates: start: 20110921, end: 20110922
  22. RIBAVIRIN [Suspect]
     Dosage: 600 MG, UNK
     Route: 048
     Dates: start: 20110923, end: 20111121
  23. RIBAVIRIN [Suspect]
     Dosage: 400 MG, UNK
     Route: 048
     Dates: start: 20110927, end: 20111121
  24. RIBAVIRIN [Suspect]
     Dosage: 400 MG, UNK
     Route: 048
     Dates: start: 20111125, end: 20111129
  25. RIBAVIRIN [Suspect]
     Dosage: 600 MG, UNK
     Route: 048
     Dates: start: 20111125, end: 20111129
  26. RIBAVIRIN [Suspect]
     Dosage: 400 MG, UNK
     Route: 048
     Dates: start: 20111201, end: 20111202
  27. RIBAVIRIN [Suspect]
     Dosage: 600 MG, UNK
     Route: 048
     Dates: start: 20111201, end: 20111201
  28. RIBAVIRIN [Suspect]
     Dosage: 400 MG, UNK
     Route: 048
     Dates: start: 20111204, end: 20111211
  29. RIBAVIRIN [Suspect]
     Dosage: 600 MG, UNK
     Route: 048
     Dates: start: 20111204, end: 20111210
  30. RIBAVIRIN [Suspect]
     Dosage: 400 MG, UNK
     Route: 048
     Dates: start: 20111213, end: 20120101
  31. RIBAVIRIN [Suspect]
     Dosage: 600 MG, UNK
     Route: 048
     Dates: start: 20111213, end: 20111213
  32. RIBAVIRIN [Suspect]
     Dosage: 400 MG, UNK
     Route: 048
     Dates: start: 20111214, end: 20120108
  33. RIBAVIRIN [Suspect]
     Dosage: 400 MG, UNK
     Route: 048
     Dates: start: 20120103, end: 20120110
  34. RIBAVIRIN [Suspect]
     Dosage: 400 MG, UNK
     Route: 048
     Dates: start: 20120110, end: 20120227
  35. RIBAVIRIN [Suspect]
     Dosage: 400 MG, UNK
     Route: 048
     Dates: start: 20120304
  36. RIBAVIRIN [Suspect]
     Dosage: 400 MG, UNK
     Route: 048
     Dates: start: 20120304
  37. DILTIAZEM HYDROCHLORIDE [Concomitant]
     Indication: HYPERTENSION
     Dosage: 120 MG, QD
     Route: 048
     Dates: start: 199701
  38. ALBUTEROL [Concomitant]
     Indication: BRONCHITIS CHRONIC
     Dosage: 1 DF, QD
     Route: 055
     Dates: start: 201001
  39. FLUTICASONE [Concomitant]
     Indication: BRONCHITIS CHRONIC
     Dosage: 110 ?G, QD
     Route: 055
     Dates: start: 20110506
  40. HYDROCHLOROTHIAZIDE (+) TRIAMTERENE [Concomitant]
     Indication: HYPERTENSION
     Dosage: 37.5 MG, QD
     Route: 048
     Dates: start: 20111025, end: 20120303

REACTIONS (1)
  - Dehydration [Recovered/Resolved]
